FAERS Safety Report 5333369-4 (Version None)
Quarter: 2007Q2

REPORT INFORMATION
  Report Type: 
  Country: None (occurrence: None)
  Receive Date: 20070307
  Receipt Date: 20060214
  Transmission Date: 20071010
  Serious: Yes (Hospitalization, Other)
  Sender: FDA-Public Use
  Company Number: 2006015251

PATIENT
  Sex: Female
  Weight: 55.7924 kg

DRUGS (4)
  1. NIFEDIPINE [Suspect]
     Indication: CARDIAC DISORDER
     Dosage: (30 MG)/ATLEAST 4 YEARS AGO
  2. NIFEDIPINE [Suspect]
     Indication: CHEST PAIN
     Dosage: (30 MG)/ATLEAST 4 YEARS AGO
  3. PROCARDIA XL [Suspect]
     Indication: CARDIAC DISORDER
     Dosage: (30 MG)
  4. PROCARDIA XL [Suspect]
     Indication: CHEST PAIN
     Dosage: (30 MG)

REACTIONS (2)
  - BLOOD PRESSURE INCREASED [None]
  - CHEST PAIN [None]
